FAERS Safety Report 24619721 (Version 1)
Quarter: 2024Q4

REPORT INFORMATION
  Report Type: Spontaneous
  Country: US (occurrence: US)
  Receive Date: 20241114
  Receipt Date: 20241114
  Transmission Date: 20250115
  Serious: Yes (Other)
  Sender: JOHNSON AND JOHNSON
  Company Number: US-JNJFOC-20241129317

PATIENT
  Age: 66 Year
  Sex: Female

DRUGS (1)
  1. SIMPONI ARIA [Suspect]
     Active Substance: GOLIMUMAB
     Indication: Psoriatic arthropathy
     Dosage: MOST RECENT APPLICATION OF GOLIMUMAB WAS ON 12-NOV-2024
     Route: 041

REACTIONS (3)
  - Psoriatic arthropathy [Unknown]
  - Mineral supplementation [Unknown]
  - Therapeutic response decreased [Unknown]
